FAERS Safety Report 4448489-6 (Version None)
Quarter: 2004Q3

REPORT INFORMATION
  Report Type: 
  Country: None (occurrence: None)
  Receive Date: 20040909
  Receipt Date: 20040909
  Transmission Date: 20050211
  Serious: Yes (Hospitalization)
  Sender: FDA-Public Use
  Company Number: None

PATIENT
  Sex: Male
  Weight: 136.0791 kg

DRUGS (2)
  1. SEROQUEL [Suspect]
     Indication: ABNORMAL BEHAVIOUR
     Dosage: 2 TABS DAILY ORAL
     Route: 048
  2. ABILIFY [Suspect]
     Dosage: 1 TAB DAILY OROPHARINGEAL
     Route: 049

REACTIONS (1)
  - GRAND MAL CONVULSION [None]
